FAERS Safety Report 4522030-1 (Version None)
Quarter: 2004Q4

REPORT INFORMATION
  Report Type: 
  Country: None (occurrence: None)
  Receive Date: 20041206
  Receipt Date: 20041118
  Transmission Date: 20050328
  Serious: Yes (Hospitalization, Other)
  Sender: FDA-Public Use
  Company Number: 204387

PATIENT
  Sex: Female
  Weight: 65.318 kg

DRUGS (3)
  1. AVONEX [Suspect]
     Indication: MULTIPLE SCLEROSIS
     Dosage: 30 UG; QW; IM
     Route: 030
     Dates: start: 19990101
  2. AVONEX [Suspect]
     Dosage: 30 UG; QW; IM
     Route: 030
  3. TYLENOL (CAPLET) [Concomitant]

REACTIONS (5)
  - ARTHRALGIA [None]
  - CONVULSION [None]
  - LOSS OF CONSCIOUSNESS [None]
  - PRURITUS [None]
  - SPEECH DISORDER [None]
